FAERS Safety Report 6795846-9 (Version None)
Quarter: 2010Q2

REPORT INFORMATION
  Report Type: 
  Country: None (occurrence: None)
  Receive Date: 20100625
  Receipt Date: 20100618
  Transmission Date: 20101027
  Serious: Yes (Hospitalization)
  Sender: FDA-Public Use
  Company Number: A0866097A

PATIENT
  Age: 57 Year
  Sex: Female

DRUGS (8)
  1. LAMICTAL [Suspect]
     Indication: BIPOLAR DISORDER
     Route: 048
     Dates: start: 20091001
  2. PRAVACHOL [Concomitant]
  3. TOPROL-XL [Concomitant]
  4. MAXZIDE [Concomitant]
  5. LISINOPRIL [Concomitant]
  6. NORVASC [Concomitant]
  7. ASPIRIN [Concomitant]
  8. AMBIEN [Concomitant]

REACTIONS (4)
  - DEHYDRATION [None]
  - FEELING ABNORMAL [None]
  - GASTRIC DISORDER [None]
  - VOMITING [None]
